FAERS Safety Report 5808290-5 (Version None)
Quarter: 2008Q3

REPORT INFORMATION
  Report Type: 
  Country: None (occurrence: None)
  Receive Date: 20080710
  Receipt Date: 20080626
  Transmission Date: 20090109
  Serious: Yes (Hospitalization)
  Sender: FDA-Public Use
  Company Number: DSU-2008-00787

PATIENT
  Age: 73 Year
  Sex: Female

DRUGS (4)
  1. BENICAR [Suspect]
     Indication: HYPERTENSION
     Dosage: 80 MG (40 MG, BID), PER ORAL
     Route: 048
  2. TEKTURNA (ALISKIRIN) (RENINANGIOTENSIN SYSTEM, AGENTS ACTING ON) (TABL [Concomitant]
  3. UNSPECIFIED BETA BLOCKER (BETA BLOCKING AGENTS) [Concomitant]
  4. UNSPECIFIED ACE-INHIBITOR (ACE INHIBITOR NOS) [Concomitant]

REACTIONS (1)
  - HYPERTENSION [None]
